FAERS Safety Report 5521143-5 (Version None)
Quarter: 2007Q4

REPORT INFORMATION
  Report Type: 
  Country: None (occurrence: None)
  Receive Date: 20071119
  Receipt Date: 20071107
  Transmission Date: 20080405
  Serious: Yes (Other)
  Sender: FDA-Public Use
  Company Number: ES-AMGEN-UK252049

PATIENT
  Sex: Female
  Weight: 101 kg

DRUGS (4)
  1. MIMPARA [Suspect]
     Indication: HYPERPARATHYROIDISM SECONDARY
     Route: 048
     Dates: start: 20051205
  2. RENAGEL [Concomitant]
     Route: 048
  3. GEMFIBROZIL [Concomitant]
     Route: 048
     Dates: start: 20060901
  4. CALCIUM [Concomitant]
     Route: 048
     Dates: start: 20070101

REACTIONS (2)
  - ABDOMINAL PAIN UPPER [None]
  - VOMITING [None]
